FAERS Safety Report 6129256-4 (Version None)
Quarter: 2009Q1

REPORT INFORMATION
  Report Type: 
  Country: None (occurrence: None)
  Receive Date: 20090324
  Receipt Date: 20090319
  Transmission Date: 20090719
  Serious: Yes (Death, Hospitalization, Other)
  Sender: FDA-Public Use
  Company Number: US-ROCHE-622895

PATIENT
  Age: 70 Year
  Sex: Female

DRUGS (1)
  1. XELODA [Suspect]
     Indication: PANCREATIC CARCINOMA STAGE II
     Route: 065

REACTIONS (3)
  - DEATH [None]
  - INFECTION [None]
  - MUCOSAL INFLAMMATION [None]
